FAERS Safety Report 12410530 (Version 1)
Quarter: 2016Q2

REPORT INFORMATION
  Report Type: Other
  Country: GB (occurrence: GB)
  Receive Date: 20160527
  Receipt Date: 20160527
  Transmission Date: 20160815
  Serious: Yes (Other)
  Sender: FDA-Public Use
  Company Number: GB-GLENMARK GENERICS (EUROPE) LTD.-2016GMK022999

PATIENT

DRUGS (2)
  1. VAGIFEM [Concomitant]
     Active Substance: ESTRADIOL
     Indication: PRODUCT USED FOR UNKNOWN INDICATION
  2. TROSPIUM CHLORIDE. [Suspect]
     Active Substance: TROSPIUM CHLORIDE
     Indication: BLADDER DISORDER
     Dosage: 60 MG, OD
     Route: 048

REACTIONS (2)
  - Abdominal distension [Not Recovered/Not Resolved]
  - Pain [Not Recovered/Not Resolved]
